FAERS Safety Report 9192076 (Version 1)
Quarter: 2013Q1

REPORT INFORMATION
  Report Type: Spontaneous
  Country: GB (occurrence: None)
  Receive Date: 20130325
  Receipt Date: 20130325
  Transmission Date: 20140127
  Serious: Yes (Other)
  Sender: FDA-Public Use
  Company Number: 2013-05009

PATIENT
  Age: 56 Year
  Sex: Female

DRUGS (3)
  1. METFORMIN HCL [Suspect]
  2. SITAGLIPTIN [Suspect]
  3. SITAGLIPTIN [Suspect]

REACTIONS (2)
  - Pancreatitis [None]
  - Abdominal pain upper [None]
